FAERS Safety Report 24524547 (Version 1)
Quarter: 2024Q4

REPORT INFORMATION
  Report Type: Spontaneous
  Country: FR (occurrence: FR)
  Receive Date: 20241019
  Receipt Date: 20241019
  Transmission Date: 20250115
  Serious: Yes (Other)
  Sender: ACCORD
  Company Number: None

PATIENT
  Age: 76 Year
  Sex: Female
  Weight: 56 kg

DRUGS (7)
  1. CISPLATIN [Suspect]
     Active Substance: CISPLATIN
     Indication: Pancreatic carcinoma
     Dosage: STRENGTH:  1 MG/ML, CONCENTRATE FOR SOLUTION FOR INFUSION
     Dates: start: 20240415, end: 20240801
  2. AMLODIPINE BESYLATE [Concomitant]
     Active Substance: AMLODIPINE BESYLATE
     Dosage: STRENGTH: 5 MG, CAPSULE
  3. EMEND [Concomitant]
     Active Substance: APREPITANT
     Indication: Chemotherapy side effect prophylaxis
     Dosage: STRENGTH: 125 MG, CAPSULE
     Dates: start: 20240502
  4. ONDANSETRON [Concomitant]
     Active Substance: ONDANSETRON
     Indication: Chemotherapy side effect prophylaxis
     Dosage: 2 MG/ML, SOLUTION FOR INJECTION, 8MG
     Dates: start: 20240222
  5. GEMCITABINE [Concomitant]
     Active Substance: GEMCITABINE
     Dosage: 1200MG, 100 MG/ML, CONCENTRATE FOR SOLUTION FOR INFUSION
     Dates: start: 20240222
  6. METHYLPREDNISOLONE [Concomitant]
     Active Substance: METHYLPREDNISOLONE
     Indication: Chemotherapy side effect prophylaxis
     Dosage: 60MG, STRENGTH: 120 MG, POWDER FOR SOLUTION FOR INJECTION
     Dates: start: 20240222
  7. HEPARIN [Concomitant]
     Active Substance: HEPARIN SODIUM

REACTIONS (1)
  - Anaphylactoid reaction [Recovered/Resolved]

NARRATIVE: CASE EVENT DATE: 20240801
